FAERS Safety Report 24767554 (Version 2)
Quarter: 2024Q4

REPORT INFORMATION
  Report Type: Spontaneous
  Country: MX (occurrence: MX)
  Receive Date: 20241223
  Receipt Date: 20241230
  Transmission Date: 20250115
  Serious: Yes (Death)
  Sender: NOVARTIS
  Company Number: MX-002147023-NVSC2024MX242096

PATIENT
  Sex: Male
  Weight: 92 kg

DRUGS (1)
  1. EXFORGE HCT [Suspect]
     Active Substance: AMLODIPINE BESYLATE\HYDROCHLOROTHIAZIDE\VALSARTAN
     Indication: Hypertension
     Dosage: UNK, QD ( (5/160/1 2.5MG))
     Route: 048
     Dates: start: 2017

REACTIONS (3)
  - Pneumonia [Fatal]
  - Ganglioglioma [Fatal]
  - Off label use [Unknown]

NARRATIVE: CASE EVENT DATE: 20170101
